FAERS Safety Report 7089070-2 (Version None)
Quarter: 2010Q4

REPORT INFORMATION
  Report Type: 
  Country: None (occurrence: None)
  Receive Date: 20101108
  Receipt Date: 20101102
  Transmission Date: 20110411
  Serious: Yes (Congenital Anomaly)
  Sender: FDA-Public Use
  Company Number: B0682307B

PATIENT
  Sex: Female

DRUGS (2)
  1. DEROXAT [Suspect]
     Indication: PRODUCT USED FOR UNKNOWN INDICATION
     Dates: start: 20090101, end: 20090401
  2. CORTANCYL [Concomitant]
     Indication: HYPOPHYSITIS
     Dates: start: 20090901

REACTIONS (5)
  - CAESAREAN SECTION [None]
  - CRANIOSYNOSTOSIS [None]
  - DRUG EXPOSURE DURING PREGNANCY [None]
  - SCAPHOCEPHALY [None]
  - SKULL MALFORMATION [None]
